FAERS Safety Report 8684334 (Version 4)
Quarter: 2018Q3

REPORT INFORMATION
  Report Type: Spontaneous
  Country: US (occurrence: US)
  Receive Date: 20120726
  Receipt Date: 20180803
  Transmission Date: 20181010
  Serious: Yes (Congenital Anomaly, Other)
  Sender: FDA-Public Use
  Company Number: US-009507513-1206USA01760B1

PATIENT
  Age: 0 Year
  Sex: Female
  Weight: 1.35 kg

DRUGS (6)
  1. RETROVIR [Suspect]
     Active Substance: ZIDOVUDINE
     Dosage: 2000 MG, QD
     Route: 064
     Dates: start: 20110515, end: 20120516
  2. ISENTRESS [Suspect]
     Active Substance: RALTEGRAVIR POTASSIUM
     Indication: HIV INFECTION
     Dosage: 800 MG, QD
     Route: 064
     Dates: start: 20111115, end: 20120516
  3. PREZISTA [Suspect]
     Active Substance: DARUNAVIR ETHANOLATE
     Dosage: 1200 MG, QD
     Route: 064
     Dates: start: 20111115, end: 20120516
  4. NORVIR [Suspect]
     Active Substance: RITONAVIR
     Dosage: 200 MG, QD
     Route: 064
     Dates: start: 20111115, end: 20120516
  5. INTELENCE [Suspect]
     Active Substance: ETRAVIRINE
     Dosage: 400 MG, QD
     Route: 064
     Dates: start: 20111115, end: 20120516
  6. EPZICOM [Suspect]
     Active Substance: ABACAVIR SULFATE\LAMIVUDINE
     Dosage: 1 TAB/CAPS, QD
     Route: 064
     Dates: start: 20111115, end: 20120516

REACTIONS (4)
  - Foetal exposure during pregnancy [Recovered/Resolved]
  - Foetal growth restriction [Unknown]
  - Low birth weight baby [Unknown]
  - Small for dates baby [Unknown]

NARRATIVE: CASE EVENT DATE: 20120410
